FAERS Safety Report 6143672-6 (Version None)
Quarter: 2009Q2

REPORT INFORMATION
  Report Type: 
  Country: None (occurrence: None)
  Receive Date: 20090403
  Receipt Date: 20090402
  Transmission Date: 20091009
  Serious: Yes (Other)
  Sender: FDA-Public Use
  Company Number: TW-ROXANE LABORATORIES, INC.-2009-RO-00327RO

PATIENT
  Age: 48 Year
  Sex: Male

DRUGS (1)
  1. LIDOCAINE [Suspect]
     Indication: ERECTION INCREASED
     Route: 061

REACTIONS (3)
  - BRADYCARDIA [None]
  - CHEST DISCOMFORT [None]
  - DRUG TOXICITY [None]
